FAERS Safety Report 4547659-6 (Version None)
Quarter: 2005Q1

REPORT INFORMATION
  Report Type: 
  Country: None (occurrence: None)
  Receive Date: 20050107
  Receipt Date: 20041214
  Transmission Date: 20050727
  Serious: Yes (Hospitalization)
  Sender: FDA-Public Use
  Company Number: US-ABBOTT-04P-163-0283873-01

PATIENT
  Sex: Female

DRUGS (33)
  1. HUMIRA [Suspect]
     Indication: RHEUMATOID ARTHRITIS
     Dosage: 40 MG
     Route: 058
     Dates: start: 20010621, end: 20040123
  2. HUMIRA [Suspect]
     Dosage: 40 MG
     Route: 058
     Dates: start: 20040312
  3. FELODIPINE [Concomitant]
     Indication: HYPERTENSION
     Route: 048
     Dates: start: 20010206
  4. METOPROLOL [Concomitant]
     Indication: HYPERTENSION
     Route: 048
     Dates: start: 20010206
  5. SERTRALINE HYDROCHLORIDE [Concomitant]
     Indication: DEPRESSION
     Route: 048
     Dates: start: 20010207
  6. CETIRIZINE HCL [Concomitant]
     Indication: HYPERSENSITIVITY
     Route: 048
     Dates: start: 20010924
  7. LOTRISONE [Concomitant]
     Indication: BLISTER
     Route: 061
     Dates: start: 20010315, end: 20030220
  8. LOTRISONE [Concomitant]
     Route: 061
     Dates: start: 20030221
  9. METHOTREXATE SODIUM [Concomitant]
     Indication: RHEUMATOID ARTHRITIS
     Dates: start: 20040311
  10. METHOTREXATE SODIUM [Concomitant]
     Route: 048
     Dates: start: 19860501, end: 20040115
  11. OXYCODONE HCL [Concomitant]
     Indication: POST PROCEDURAL PAIN
     Dosage: 5/15MG
     Route: 048
     Dates: start: 20040129
  12. HYDROMORPHONE HYDROCHLORIDE [Concomitant]
     Indication: ANAESTHESIA
     Route: 042
     Dates: start: 20040129, end: 20040129
  13. FENTANYL [Concomitant]
     Indication: ANAESTHESIA
     Route: 042
     Dates: start: 20040129, end: 20040129
  14. MEDZOLAM [Concomitant]
     Indication: ANAESTHESIA
     Route: 042
     Dates: start: 20040129, end: 20040129
  15. DOCUSATE SODIUM [Concomitant]
     Indication: PROPHYLAXIS
     Route: 048
     Dates: start: 20040129
  16. LISINOPRIL [Concomitant]
     Indication: HYPERTENSION
     Route: 048
     Dates: start: 19950101
  17. AMLODIPINE [Concomitant]
     Indication: HYPERTENSION
     Route: 048
     Dates: start: 19950101, end: 20010206
  18. ROFECOXIB [Concomitant]
     Indication: RHEUMATOID ARTHRITIS
     Route: 048
     Dates: start: 20000215, end: 20010106
  19. ESTROGENS CONJUGATED [Concomitant]
     Indication: HORMONE REPLACEMENT THERAPY
     Route: 048
     Dates: start: 19730101
  20. FOLIC ACID [Concomitant]
     Indication: RHEUMATOID ARTHRITIS
     Route: 048
     Dates: start: 19890101
  21. DEXTROPROPOXYPHENE [Concomitant]
     Indication: RHEUMATOID ARTHRITIS
     Route: 048
     Dates: start: 19980101
  22. HYDROCHLOROTHIAZIDE [Concomitant]
     Indication: HYPERTENSION
     Route: 048
     Dates: start: 19980101
  23. DIPHENHYDRAMINE HYDROCHLORIDE [Concomitant]
     Indication: PRURITUS
     Dates: start: 20000707, end: 20000725
  24. DIPHENHYDRAMINE HYDROCHLORIDE [Concomitant]
     Indication: BLISTER
  25. ACETAMINOPHEN [Concomitant]
     Indication: HEADACHE
     Route: 048
     Dates: start: 20000925, end: 20001023
  26. TRIAMCINOLONE HEXACETONIDE [Concomitant]
     Indication: RHEUMATOID ARTHRITIS
     Dates: start: 20000925, end: 20000925
  27. LIDOCAINE [Concomitant]
     Indication: RHEUMATOID ARTHRITIS
     Dates: start: 20000925, end: 20000925
  28. RABEPRAZOLE SODIUM [Concomitant]
     Indication: PROPHYLAXIS AGAINST GASTROINTESTINAL ULCER
     Route: 048
     Dates: start: 20001120, end: 20010106
  29. RABEPRAZOLE SODIUM [Concomitant]
     Route: 048
     Dates: start: 20041008
  30. HYDROXYCHLOROQUINE PHOSPHATE [Concomitant]
     Indication: RHEUMATOID ARTHRITIS
     Route: 048
     Dates: start: 19890101, end: 19900101
  31. AURANOFIN [Concomitant]
     Indication: RHEUMATOID ARTHRITIS
     Route: 048
     Dates: start: 19860101, end: 19860501
  32. SULFASALAZINE [Concomitant]
     Indication: RHEUMATOID ARTHRITIS
     Dosage: 1000 BID-500 BID
     Route: 048
     Dates: start: 19980527, end: 20000509
  33. LORATADINE [Concomitant]
     Indication: DRUG USE FOR UNKNOWN INDICATION
     Route: 048
     Dates: start: 20041008

REACTIONS (11)
  - AORTIC VALVE INCOMPETENCE [None]
  - CARDIAC FAILURE CONGESTIVE [None]
  - DIASTOLIC DYSFUNCTION [None]
  - DILATATION ATRIAL [None]
  - HYPERTENSIVE EMERGENCY [None]
  - MITRAL VALVE INCOMPETENCE [None]
  - PULMONARY HYPERTENSION [None]
  - PULMONARY VALVE INCOMPETENCE [None]
  - TRICUSPID VALVE INCOMPETENCE [None]
  - VENTRICULAR HYPERTROPHY [None]
  - WEIGHT INCREASED [None]
